FAERS Safety Report 14115178 (Version 1)
Quarter: 2017Q4

REPORT INFORMATION
  Report Type: Spontaneous
  Country: US (occurrence: US)
  Receive Date: 20171023
  Receipt Date: 20171023
  Transmission Date: 20180321
  Serious: Yes (Other)
  Sender: FDA-Public Use
  Company Number: US-LPDUSPRD-20171414

PATIENT
  Age: 79 Year
  Sex: Female

DRUGS (1)
  1. INJECTAFER [Suspect]
     Active Substance: FERRIC CARBOXYMALTOSE
     Dosage: 750 MG
     Route: 042
     Dates: start: 201707

REACTIONS (5)
  - Bronchitis [Unknown]
  - Fatigue [Unknown]
  - Cough [Unknown]
  - Haemoglobin decreased [Unknown]
  - Dyspnoea [Unknown]
